FAERS Safety Report 8422939-2 (Version None)
Quarter: 2012Q2

REPORT INFORMATION
  Report Type: 
  Country: None (occurrence: None)
  Receive Date: 20120608
  Receipt Date: 20120511
  Transmission Date: 20120825
  Serious: Yes (Hospitalization)
  Sender: FDA-Public Use
  Company Number: JP-GLAXOSMITHKLINE-B0801468A

PATIENT
  Sex: Male
  Weight: 60 kg

DRUGS (19)
  1. DEPAS [Concomitant]
     Dosage: .5MG PER DAY
     Route: 048
     Dates: end: 20120510
  2. ZOLPIDEM [Concomitant]
     Dosage: 5MG PER DAY
     Route: 048
     Dates: end: 20120510
  3. LYRICA [Concomitant]
     Dosage: 150MG PER DAY
     Route: 048
     Dates: start: 20120508, end: 20120510
  4. TAURINE [Concomitant]
     Dosage: 3IUAX PER DAY
     Route: 048
     Dates: end: 20120510
  5. FUROSEMIDE [Concomitant]
     Dosage: 60MG PER DAY
     Route: 048
     Dates: end: 20120510
  6. CANDESARTAN CILEXETIL [Concomitant]
     Dosage: 8MG PER DAY
     Route: 048
     Dates: end: 20120510
  7. AMITRIPTYLINE HCL [Concomitant]
     Dosage: 20MG PER DAY
     Route: 048
     Dates: end: 20120510
  8. OXYCONTIN [Concomitant]
     Indication: CANCER PAIN
     Dosage: 40MG PER DAY
     Route: 048
     Dates: end: 20120510
  9. URIEF [Concomitant]
     Dosage: 8MG PER DAY
     Route: 048
     Dates: end: 20120510
  10. PREDNISOLONE [Concomitant]
     Dosage: 10MG PER DAY
     Route: 048
     Dates: end: 20120510
  11. CLONAZEPAM [Concomitant]
     Dosage: .5MG PER DAY
     Route: 048
     Dates: end: 20120510
  12. ALOSENN [Concomitant]
     Dosage: 2IUAX PER DAY
     Route: 048
     Dates: end: 20120510
  13. ARASENA-A [Concomitant]
     Route: 061
     Dates: end: 20120510
  14. LANSOPRAZOLE [Concomitant]
     Dosage: 15MG PER DAY
     Route: 048
     Dates: end: 20120510
  15. LAXOBERON [Concomitant]
     Route: 048
  16. BUFFERIN [Concomitant]
     Dosage: 81MG PER DAY
     Route: 048
     Dates: end: 20120510
  17. VALTREX [Suspect]
     Indication: HERPES ZOSTER
     Dosage: 3000MG PER DAY
     Route: 048
     Dates: start: 20120508, end: 20120510
  18. LIPITOR [Concomitant]
     Dosage: 10MG PER DAY
     Route: 048
     Dates: end: 20120510
  19. MAGMITT [Concomitant]
     Dosage: 990MG PER DAY
     Route: 048
     Dates: end: 20120510

REACTIONS (6)
  - BLOOD POTASSIUM INCREASED [None]
  - DEHYDRATION [None]
  - ALTERED STATE OF CONSCIOUSNESS [None]
  - RENAL FAILURE ACUTE [None]
  - BLOOD UREA INCREASED [None]
  - BLOOD CREATININE INCREASED [None]
